FAERS Safety Report 17733516 (Version 1)
Quarter: 2020Q2

REPORT INFORMATION
  Report Type: Spontaneous
  Country: US (occurrence: US)
  Receive Date: 20200430
  Receipt Date: 20200430
  Transmission Date: 20200714
  Serious: Yes (Hospitalization)
  Sender: FDA-Public Use
  Company Number: None

PATIENT
  Age: 77 Year
  Sex: Male

DRUGS (1)
  1. TACROLIMUS 0.5 MG PO CAP [Suspect]
     Active Substance: TACROLIMUS
     Indication: CORONARY ARTERY DISEASE
     Route: 048
     Dates: start: 20150811

REACTIONS (1)
  - Myocardial infarction [None]

NARRATIVE: CASE EVENT DATE: 20200429
